FAERS Safety Report 18724493 (Version 1)
Quarter: 2021Q1

REPORT INFORMATION
  Report Type: Spontaneous
  Country: US (occurrence: US)
  Receive Date: 20210111
  Receipt Date: 20210111
  Transmission Date: 20210419
  Serious: Yes (Hospitalization, Other)
  Sender: FDA-Public Use
  Company Number: None

PATIENT
  Age: 85 Year
  Sex: Male
  Weight: 84.7 kg

DRUGS (1)
  1. CASIRIVIMAB?IMDEVIMAB [Suspect]
     Active Substance: CASIRIVIMAB\IMDEVIMAB
     Indication: COVID-19
     Dosage: ?          OTHER FREQUENCY:ONCE;?
     Route: 042
     Dates: start: 20210104, end: 20210104

REACTIONS (11)
  - Oxygen saturation decreased [None]
  - Atrial flutter [None]
  - Swollen tongue [None]
  - Sinus node dysfunction [None]
  - Tachycardia [None]
  - Pharyngeal swelling [None]
  - Tremor [None]
  - Anaphylactic reaction [None]
  - Troponin increased [None]
  - Confusional state [None]
  - Dysarthria [None]

NARRATIVE: CASE EVENT DATE: 20210104
